FAERS Safety Report 23291558 (Version 1)
Quarter: 2023Q4

REPORT INFORMATION
  Report Type: Other
  Country: CA (occurrence: None)
  Receive Date: 20231213
  Receipt Date: 20231213
  Transmission Date: 20240109
  Serious: Yes (Other)
  Sender: FDA-Public Use
  Company Number: CA-ROCHE-3472557

PATIENT
  Age: 52 Year
  Sex: Male

DRUGS (22)
  1. ENTRECTINIB [Suspect]
     Active Substance: ENTRECTINIB
     Indication: Pancreatic carcinoma metastatic
     Route: 065
  2. TRASTUZUMAB [Suspect]
     Active Substance: TRASTUZUMAB
     Indication: Pancreatic carcinoma metastatic
     Route: 065
  3. CAPECITABINE [Suspect]
     Active Substance: CAPECITABINE
     Indication: Pancreatic carcinoma metastatic
     Route: 065
  4. LORLATINIB [Suspect]
     Active Substance: LORLATINIB
     Indication: Pancreatic carcinoma metastatic
     Route: 065
  5. OXALIPLATIN [Suspect]
     Active Substance: OXALIPLATIN
     Indication: Pancreatic carcinoma metastatic
     Route: 065
  6. PEMBROLIZUMAB [Suspect]
     Active Substance: PEMBROLIZUMAB
     Indication: Pancreatic carcinoma metastatic
     Route: 065
  7. PEMETREXED [Suspect]
     Active Substance: PEMETREXED
     Indication: Pancreatic carcinoma metastatic
     Route: 065
  8. GEMCITABINE [Suspect]
     Active Substance: GEMCITABINE
     Indication: Pancreatic carcinoma metastatic
     Route: 065
  9. PACLITAXEL [Concomitant]
     Active Substance: PACLITAXEL
  10. DEMCIZUMAB [Concomitant]
     Active Substance: DEMCIZUMAB
  11. LEUCOVORIN [Concomitant]
     Active Substance: LEUCOVORIN\LEUCOVORIN CALCIUM
  12. FLUOROURACIL SODIUM [Concomitant]
     Active Substance: FLUOROURACIL SODIUM
  13. IRINOTECAN [Concomitant]
     Active Substance: IRINOTECAN
  14. MITOMYCIN [Concomitant]
     Active Substance: MITOMYCIN
  15. CISPLATIN [Concomitant]
     Active Substance: CISPLATIN
  16. LIPIODOL [Concomitant]
     Active Substance: ETHIODIZED OIL
  17. EMBOCEPT [Concomitant]
  18. BRIGATINIB [Concomitant]
     Active Substance: BRIGATINIB
  19. PERTUZUMAB [Concomitant]
     Active Substance: PERTUZUMAB
     Indication: Pancreatic carcinoma metastatic
     Route: 065
  20. BEVACIZUMAB [Concomitant]
     Active Substance: BEVACIZUMAB
  21. OSIMERTINIB [Concomitant]
     Active Substance: OSIMERTINIB
  22. FAM-TRASTUZUMAB DERUXTECAN-NXKI [Concomitant]
     Active Substance: FAM-TRASTUZUMAB DERUXTECAN-NXKI

REACTIONS (5)
  - Disease progression [Unknown]
  - Metastases to central nervous system [Unknown]
  - Metastases to liver [Unknown]
  - Pancytopenia [Unknown]
  - Off label use [Unknown]
